FAERS Safety Report 5390138-7 (Version None)
Quarter: 2007Q3

REPORT INFORMATION
  Report Type: 
  Country: None (occurrence: None)
  Receive Date: 20070716
  Receipt Date: 20070716
  Transmission Date: 20080115
  Serious: Yes (Other)
  Sender: FDA-Public Use
  Company Number: None

PATIENT
  Age: 55 Year
  Sex: Female
  Weight: 77.1115 kg

DRUGS (4)
  1. PROVIGIL [Suspect]
     Indication: HANGOVER
     Dosage: 200MG QD PO
     Route: 048
     Dates: start: 20070515, end: 20070515
  2. PROVIGIL [Suspect]
     Indication: HYPERSOMNIA
     Dosage: 200MG QD PO
     Route: 048
     Dates: start: 20070515, end: 20070515
  3. PROVIGIL [Suspect]
     Indication: HANGOVER
     Dosage: 200MG QD PO
     Route: 048
     Dates: start: 20070528, end: 20070528
  4. PROVIGIL [Suspect]
     Indication: HYPERSOMNIA
     Dosage: 200MG QD PO
     Route: 048
     Dates: start: 20070528, end: 20070528

REACTIONS (5)
  - FATIGUE [None]
  - HYPOMANIA [None]
  - INSOMNIA [None]
  - IRRITABILITY [None]
  - MANIA [None]
